FAERS Safety Report 24584501 (Version 2)
Quarter: 2025Q1

REPORT INFORMATION
  Report Type: Spontaneous
  Country: US (occurrence: US)
  Receive Date: 20241106
  Receipt Date: 20250312
  Transmission Date: 20250409
  Serious: No
  Sender: MILLICENT HOLDINGS
  Company Number: US-Millicent Holdings Ltd.-MILL20241228

PATIENT
  Age: 77 Year
  Sex: Female
  Weight: 61.29 kg

DRUGS (12)
  1. FEMRING [Suspect]
     Active Substance: ESTRADIOL ACETATE
     Indication: Bone disorder
     Route: 067
     Dates: start: 20241001
  2. FEMRING [Suspect]
     Active Substance: ESTRADIOL ACETATE
     Indication: Arthritis
     Route: 067
  3. FEMRING [Suspect]
     Active Substance: ESTRADIOL ACETATE
     Indication: Menopausal symptoms
  4. FEMRING [Suspect]
     Active Substance: ESTRADIOL ACETATE
     Indication: Routine health maintenance
  5. TYLENOL [Concomitant]
     Active Substance: ACETAMINOPHEN
     Indication: Arthralgia
     Route: 048
     Dates: start: 2012
  6. TRAMADOL [Concomitant]
     Active Substance: TRAMADOL
     Indication: Back pain
     Route: 048
     Dates: start: 2017
  7. TRAMADOL [Concomitant]
     Active Substance: TRAMADOL
     Indication: Neck pain
  8. SYNTHROID [Concomitant]
     Active Substance: LEVOTHYROXINE SODIUM
     Indication: Hypothyroidism
     Route: 048
     Dates: start: 2010
  9. TOPROL XL [Concomitant]
     Active Substance: METOPROLOL SUCCINATE
     Indication: Ventricular extrasystoles
     Route: 048
     Dates: start: 2015
  10. CRESTOR [Concomitant]
     Active Substance: ROSUVASTATIN CALCIUM
     Indication: Blood cholesterol abnormal
     Route: 048
     Dates: start: 2017
  11. PROTONIX [Concomitant]
     Active Substance: PANTOPRAZOLE SODIUM
     Indication: Gastrooesophageal reflux disease
     Route: 048
     Dates: start: 2018
  12. AMLODIPINE [Concomitant]
     Active Substance: AMLODIPINE BESYLATE
     Indication: Hypertension
     Route: 048
     Dates: start: 2022

REACTIONS (6)
  - Therapeutic product effect decreased [Recovered/Resolved]
  - Drug ineffective for unapproved indication [Recovered/Resolved]
  - Bone disorder [Recovered/Resolved]
  - Arthritis [Recovered/Resolved]
  - Menopausal symptoms [Recovered/Resolved]
  - Suspected product quality issue [None]

NARRATIVE: CASE EVENT DATE: 20241001
